FAERS Safety Report 8196571-2 (Version None)
Quarter: 2012Q1

REPORT INFORMATION
  Report Type: 
  Country: None (occurrence: None)
  Receive Date: 20120309
  Receipt Date: 20120229
  Transmission Date: 20120608
  Serious: Yes (Hospitalization)
  Sender: FDA-Public Use
  Company Number: US-JNJFOC-20120210645

PATIENT
  Sex: Male
  Weight: 50.4 kg

DRUGS (9)
  1. HUMIRA [Suspect]
     Indication: INFLAMMATORY BOWEL DISEASE
     Dates: start: 20111202
  2. BENEFIBER [Concomitant]
  3. NEXIUM [Concomitant]
  4. LEVSIN [Concomitant]
  5. VITAMIN B COMPLEX CAP [Concomitant]
  6. HYOSCYAMINE [Concomitant]
  7. AMITRIPTYLINE HCL [Concomitant]
  8. REMICADE [Suspect]
     Indication: INFLAMMATORY BOWEL DISEASE
     Route: 042
     Dates: start: 20051008, end: 20100413
  9. VITAMIN D [Concomitant]

REACTIONS (3)
  - RHINOVIRUS INFECTION [None]
  - ENTEROVIRUS INFECTION [None]
  - RETROPERITONEAL ABSCESS [None]
